FAERS Safety Report 7606560-1 (Version None)
Quarter: 2011Q3

REPORT INFORMATION
  Report Type: 
  Country: None (occurrence: None)
  Receive Date: 20110713
  Receipt Date: 20110629
  Transmission Date: 20111222
  Serious: Yes (Other)
  Sender: FDA-Public Use
  Company Number: PHHY2011US57669

PATIENT
  Age: 35 Year
  Sex: Male

DRUGS (2)
  1. DIOVAN [Suspect]
     Indication: HYPERTENSION
     Dosage: 80 MG, UNK
     Dates: start: 20110101
  2. LYRICA [Suspect]
     Indication: SCIATICA
     Dosage: 75 MG, BID

REACTIONS (3)
  - SOMNOLENCE [None]
  - BLOOD PRESSURE ABNORMAL [None]
  - HEART RATE DECREASED [None]
